FAERS Safety Report 7719502-5 (Version None)
Quarter: 2011Q3

REPORT INFORMATION
  Report Type: 
  Country: None (occurrence: None)
  Receive Date: 20110830
  Receipt Date: 20110822
  Transmission Date: 20111222
  Serious: Yes (Hospitalization, Other)
  Sender: FDA-Public Use
  Company Number: US-ELI_LILLY_AND_COMPANY-US200812002388

PATIENT
  Sex: Female
  Weight: 106.58 kg

DRUGS (13)
  1. LOVENOX [Concomitant]
     Dosage: UNK, DAILY (1/D)
  2. AMARYL [Concomitant]
     Dosage: 4 MG, 2/D
  3. TRICOR [Concomitant]
     Dosage: UNK, UNKNOWN
  4. BETAMETHASONE [Concomitant]
     Dosage: UNK, UNKNOWN
  5. BYETTA [Suspect]
     Dosage: UNK, 2/D
     Dates: start: 20080901, end: 20081001
  6. LANTUS [Concomitant]
     Dosage: 60 U, EACH EVENING
  7. ZESTORETIC [Concomitant]
     Dosage: UNK, UNKNOWN
  8. METFORMIN HYDROCHLORIDE [Concomitant]
     Dosage: 1000 MG, 2/D
  9. CLINDAMYCIN [Concomitant]
     Dosage: UNK, UNKNOWN
  10. BYETTA [Suspect]
     Dosage: 5 UG, 2/D
     Route: 065
     Dates: start: 20080801, end: 20081001
  11. COREG [Concomitant]
     Dosage: 6.25 MG, DAILY (1/D)
  12. LISINOPRIL [Concomitant]
     Dosage: UNK, UNKNOWN
  13. NOVOLOG [Concomitant]
     Dosage: UNK, UNKNOWN

REACTIONS (9)
  - MYALGIA [None]
  - PANCREATITIS [None]
  - CHOLELITHIASIS [None]
  - NAUSEA [None]
  - VOMITING [None]
  - BLOOD GLUCOSE INCREASED [None]
  - ARTHRITIS [None]
  - WEIGHT DECREASED [None]
  - OFF LABEL USE [None]
